FAERS Safety Report 9857033 (Version 3)
Quarter: 2015Q3

REPORT INFORMATION
  Report Type: Spontaneous
  Country: US (occurrence: US)
  Receive Date: 20140130
  Receipt Date: 20150817
  Transmission Date: 20151125
  Serious: No
  Sender: FDA-Public Use
  Company Number: US-GILEAD-2014-0093224

PATIENT
  Age: 62 Year
  Sex: Female

DRUGS (7)
  1. LETAIRIS [Suspect]
     Active Substance: AMBRISENTAN
     Indication: PULMONARY HYPERTENSION
     Dosage: 10 MG, QD
     Route: 065
     Dates: start: 20130822
  2. LETAIRIS [Suspect]
     Active Substance: AMBRISENTAN
     Indication: CREST SYNDROME
  3. METOPROLOL [Concomitant]
     Active Substance: METOPROLOL
  4. NIFEDICAL XL [Concomitant]
     Active Substance: NIFEDIPINE
  5. CELEBREX [Concomitant]
     Active Substance: CELECOXIB
  6. LETAIRIS [Suspect]
     Active Substance: AMBRISENTAN
     Indication: SKIN ULCER
  7. OMEPRAZOLE. [Concomitant]
     Active Substance: OMEPRAZOLE

REACTIONS (4)
  - Tinnitus [Unknown]
  - Dizziness [Unknown]
  - Palpitations [Unknown]
  - Skin ulcer [Unknown]

NARRATIVE: CASE EVENT DATE: 20140124
